FAERS Safety Report 10274934 (Version 1)
Quarter: 2014Q3

REPORT INFORMATION
  Report Type: Spontaneous
  Country: GB (occurrence: GB)
  Receive Date: 20140702
  Receipt Date: 20140702
  Transmission Date: 20150326
  Serious: Yes (Other)
  Sender: FDA-Public Use
  Company Number: PHHY2014GB079015

PATIENT
  Age: 73 Year
  Sex: Male

DRUGS (4)
  1. COCODAMOL [Suspect]
     Active Substance: ACETAMINOPHEN\CODEINE PHOSPHATE
     Indication: MUSCLE SPASMS
     Route: 048
     Dates: start: 20140411
  2. MOXONIDINE [Suspect]
     Active Substance: MOXONIDINE
  3. PIROXICAM. [Concomitant]
     Active Substance: PIROXICAM
     Indication: MUSCLE SPASMS
     Route: 061
     Dates: start: 20140411
  4. DIAZEPAM. [Suspect]
     Active Substance: DIAZEPAM
     Indication: MUSCLE SPASMS
     Dosage: 5 MG, BID
     Route: 048
     Dates: start: 20140411

REACTIONS (1)
  - Syncope [Unknown]

NARRATIVE: CASE EVENT DATE: 20140411
